FAERS Safety Report 23560321 (Version 1)
Quarter: 2024Q1

REPORT INFORMATION
  Report Type: Spontaneous
  Country: US (occurrence: US)
  Receive Date: 20240223
  Receipt Date: 20240223
  Transmission Date: 20240410
  Serious: No
  Sender: FDA-Public Use
  Company Number: US-TARO PHARMACEUTICALS USA INC.-2023TAR00376

PATIENT

DRUGS (1)
  1. MINOXIDIL [Suspect]
     Active Substance: MINOXIDIL
     Indication: Product used for unknown indication
     Dosage: UNK, TOPICAL TO SCALP
     Route: 061
     Dates: start: 202303

REACTIONS (3)
  - Cardiac discomfort [Recovered/Resolved]
  - Application site irritation [Recovered/Resolved]
  - Expired product administered [Unknown]
